FAERS Safety Report 13104369 (Version 2)
Quarter: 2017Q1

REPORT INFORMATION
  Report Type: Spontaneous
  Country: GB (occurrence: GB)
  Receive Date: 20170111
  Receipt Date: 20170111
  Transmission Date: 20170428
  Serious: Yes (Hospitalization)
  Sender: FDA-Public Use
  Company Number: GB-CIPLA LTD.-2017GB00296

PATIENT

DRUGS (15)
  1. TRAMADOL. [Concomitant]
     Active Substance: TRAMADOL
     Dosage: 1 OR 2 EVERY 4 HOURS. MAXIMUM 8 CAPSULES IN 24 HOURS.112 CAPSULE - NOT TAKING.
     Route: 065
     Dates: start: 20160606
  2. MIRTAZAPINE. [Suspect]
     Active Substance: MIRTAZAPINE
     Dosage: 15 MG, QD, AT NIGHT
     Route: 065
  3. SALMETEROL AND FLUTICASONE [Concomitant]
     Active Substance: FLUTICASONE PROPIONATE\SALMETEROL XINAFOATE
     Dosage: 1 DF, BID
  4. MENTHOL. [Concomitant]
     Active Substance: MENTHOL
     Dosage: AS DIRECTED 500 GRAM
     Route: 065
     Dates: start: 20160413
  5. SALBUTAMOL [Concomitant]
     Active Substance: ALBUTEROL
     Dosage: ONE OR TWO PUFFS TO BE INHALED UP TO FOUR TIMES A DAY
  6. ZAPAIN [Concomitant]
     Active Substance: ACETAMINOPHEN\CODEINE PHOSPHATE
     Dosage: 1 OR 2 TO BE TAKEN 4 TIMES A DAY. 30MG/ 500MG
     Route: 065
  7. NUTRITIONAL SUPPLEMENT [Concomitant]
     Active Substance: DIETARY SUPPLEMENT
     Dosage: 220 ML, UNK
     Route: 065
     Dates: start: 20160707
  8. OMEPRAZOLE. [Suspect]
     Active Substance: OMEPRAZOLE
     Dosage: 20 MG, QD
     Route: 065
  9. CALCIUM CARBONATE. [Concomitant]
     Active Substance: CALCIUM CARBONATE
     Dosage: 1.25 G, QD
     Route: 065
  10. RISEDRONATE SODIUM. [Concomitant]
     Active Substance: RISEDRONATE SODIUM
     Dosage: 35 MG, ONCE WEEKLY TUESDAY.
     Route: 065
  11. PROPRANOLOL [Suspect]
     Active Substance: PROPRANOLOL HYDROCHLORIDE
     Dosage: 80 MG, QD, MODIFIED RELEASE
     Route: 065
  12. COLECALCIFEROL [Concomitant]
     Active Substance: CHOLECALCIFEROL
     Dosage: 400 IU, QD
     Route: 065
  13. TIOTROPIUM BROMIDE [Concomitant]
     Active Substance: TIOTROPIUM BROMIDE
     Dosage: 18 ?G, QD
     Route: 065
  14. SERTRALINE [Suspect]
     Active Substance: SERTRALINE HYDROCHLORIDE
     Dosage: 100MG 1 WEEK THEN REDUCING DOSE TO 50MG ONCE A DAY THEN CHANGE TO MIRTAZEPINE
     Route: 065
     Dates: start: 20160630
  15. NUTRITIONAL SUPPLEMENT [Concomitant]
     Active Substance: DIETARY SUPPLEMENT
     Dosage: 220 ML, UNK
     Route: 065
     Dates: start: 20160518, end: 20160707

REACTIONS (3)
  - Hyponatraemia [Recovered/Resolved]
  - Hypotension [Recovered/Resolved]
  - Drug administration error [Recovered/Resolved]
